FAERS Safety Report 8466061 (Version 2)
Quarter: 2012Q4

REPORT INFORMATION
  Report Type: 
  Country: FR (occurrence: FR)
  Receive Date: 20120319
  Receipt Date: 20121113
  Transmission Date: 20130627
  Serious: Yes (Death, Other)
  Sender: FDA-Public Use
  Company Number: FR-JNJFOC-20120306263

PATIENT
  Age: 72 None
  Sex: Female

DRUGS (8)
  1. XARELTO [Suspect]
     Indication: KNEE ARTHROPLASTY
     Route: 048
     Dates: start: 20120229, end: 201203
  2. XARELTO [Suspect]
     Indication: HIP ARTHROPLASTY
     Route: 048
     Dates: start: 20120229, end: 201203
  3. HEPARIN [Concomitant]
     Dates: start: 20120228, end: 20120228
  4. INEXIUM [Concomitant]
  5. PARIET [Concomitant]
  6. LYSANXIA [Concomitant]
  7. VITAMIN B1 [Concomitant]
  8. TRAMADOL [Concomitant]

REACTIONS (2)
  - Intestinal infarction [Fatal]
  - Gastrointestinal haemorrhage [Fatal]
